FAERS Safety Report 12274124 (Version 1)
Quarter: 2016Q2

REPORT INFORMATION
  Report Type: Spontaneous
  Country: US (occurrence: US)
  Receive Date: 20160415
  Receipt Date: 20160415
  Transmission Date: 20160815
  Serious: No
  Sender: FDA-Public Use
  Company Number: US-ALLERGAN-1518938US

PATIENT
  Sex: Female

DRUGS (2)
  1. LATISSE [Suspect]
     Active Substance: BIMATOPROST
     Indication: EYELASH THICKENING
  2. LATISSE [Suspect]
     Active Substance: BIMATOPROST
     Indication: GROWTH OF EYELASHES
     Dosage: 2 GTT, QPM
     Route: 061
     Dates: start: 201509, end: 201509

REACTIONS (6)
  - Blepharitis [Recovered/Resolved]
  - Eyelid thickening [Recovered/Resolved]
  - Eye pruritus [Recovered/Resolved]
  - Eyelids pruritus [Recovered/Resolved]
  - Hypersensitivity [Recovered/Resolved]
  - Eye irritation [Recovered/Resolved]
